FAERS Safety Report 19940982 (Version 2)
Quarter: 2021Q4

REPORT INFORMATION
  Report Type: Spontaneous
  Country: ES (occurrence: ES)
  Receive Date: 20211011
  Receipt Date: 20211019
  Transmission Date: 20220303
  Serious: Yes (Hospitalization, Other)
  Sender: FDA-Public Use
  Company Number: ES-GLAXOSMITHKLINE-ES2021EME122096

PATIENT
  Sex: Female

DRUGS (5)
  1. QUETIAPINE [Suspect]
     Active Substance: QUETIAPINE
     Indication: Product used for unknown indication
     Dosage: 300 MILLIGRAM
  2. LAMICTAL [Suspect]
     Active Substance: LAMOTRIGINE
     Indication: Product used for unknown indication
     Dosage: 50 MILLIGRAM, QD (25MG BID)
     Dates: start: 20210414
  3. LAMICTAL [Suspect]
     Active Substance: LAMOTRIGINE
     Dosage: 100 MILLIGRAM, QD
     Dates: start: 20210422
  4. LAMICTAL [Suspect]
     Active Substance: LAMOTRIGINE
     Dosage: 200 MILLIGRAM, QD
     Dates: start: 20210520
  5. RIVOTRIL [Suspect]
     Active Substance: CLONAZEPAM
     Indication: Product used for unknown indication
     Dosage: 2 MILLIGRAM

REACTIONS (27)
  - Hospitalisation [Unknown]
  - Haemophagocytic lymphohistiocytosis [Unknown]
  - Leukopenia [Unknown]
  - Haemorrhage [Unknown]
  - Infection [Unknown]
  - Ocular hyperaemia [Unknown]
  - Immune system disorder [Unknown]
  - Contusion [Unknown]
  - Dermatitis atopic [Unknown]
  - Weight decreased [Unknown]
  - Ocular discomfort [Not Recovered/Not Resolved]
  - Lymphadenopathy [Unknown]
  - Lip haemorrhage [Not Recovered/Not Resolved]
  - Rash [Not Recovered/Not Resolved]
  - Eye swelling [Unknown]
  - Skin exfoliation [Unknown]
  - Oropharyngeal pain [Unknown]
  - Diplopia [Unknown]
  - Cutaneous symptom [Not Recovered/Not Resolved]
  - Fatigue [Not Recovered/Not Resolved]
  - Vision blurred [Unknown]
  - Hypersensitivity [Unknown]
  - Pyrexia [Unknown]
  - Headache [Not Recovered/Not Resolved]
  - Dizziness [Unknown]
  - Drug hypersensitivity [Unknown]
  - Eosinophil count increased [Unknown]

NARRATIVE: CASE EVENT DATE: 20210501
